FAERS Safety Report 18233112 (Version 1)
Quarter: 2020Q3

REPORT INFORMATION
  Report Type: Spontaneous
  Country: NL (occurrence: FR)
  Receive Date: 20200904
  Receipt Date: 20200904
  Transmission Date: 20201103
  Serious: Yes (Other)
  Sender: FDA-Public Use
  Company Number: FR-FRESENIUS KABI-FK202008869

PATIENT
  Age: 37 Year
  Sex: Female
  Weight: 55.2 kg

DRUGS (1)
  1. OXALIPLATIN (MANUFACTURER UNKNOWN) [Suspect]
     Active Substance: OXALIPLATIN
     Indication: RECTAL ADENOCARCINOMA
     Route: 042
     Dates: start: 20191118, end: 20200324

REACTIONS (7)
  - Tachycardia [Recovered/Resolved]
  - Paraesthesia [Recovered/Resolved]
  - Anxiety [Recovered/Resolved]
  - Stridor [Recovered/Resolved]
  - Laryngospasm [Recovered/Resolved]
  - Asthenia [Not Recovered/Not Resolved]
  - Abdominal pain upper [Not Recovered/Not Resolved]

NARRATIVE: CASE EVENT DATE: 20200324
